FAERS Safety Report 6420508-7 (Version None)
Quarter: 2009Q4

REPORT INFORMATION
  Report Type: 
  Country: None (occurrence: None)
  Receive Date: 20091029
  Receipt Date: 20091019
  Transmission Date: 20100525
  Serious: Yes (Death)
  Sender: FDA-Public Use
  Company Number: JP-GENENTECH-292255

PATIENT
  Sex: Male

DRUGS (9)
  1. AVASTIN [Suspect]
     Indication: COLON CANCER RECURRENT
     Dosage: 5 MG/KG, Q2W
     Route: 041
     Dates: start: 20090602, end: 20090818
  2. IRINOTECAN HCL [Suspect]
     Indication: COLON CANCER RECURRENT
     Dosage: 180 MG, Q2W
     Route: 041
     Dates: start: 20090602, end: 20090818
  3. FLUOROURACIL [Concomitant]
     Indication: DRUG USE FOR UNKNOWN INDICATION
     Dosage: UNK
     Route: 040
     Dates: start: 20090602, end: 20090818
  4. CALCIUM LEVOFOLINATE [Concomitant]
     Indication: DRUG USE FOR UNKNOWN INDICATION
     Dosage: UNK
     Route: 041
     Dates: start: 20090602, end: 20090818
  5. OXYCONTIN [Concomitant]
     Indication: DRUG USE FOR UNKNOWN INDICATION
     Dosage: UNK
     Dates: start: 20081007, end: 20090818
  6. BROTIZOLAM [Concomitant]
     Indication: DRUG USE FOR UNKNOWN INDICATION
     Dosage: UNK
     Dates: start: 20081007, end: 20090818
  7. LAC-B [Concomitant]
     Indication: DRUG USE FOR UNKNOWN INDICATION
     Dosage: UNK
     Dates: start: 20081028, end: 20090818
  8. HERBAL EXTRACTS [Concomitant]
     Indication: DRUG USE FOR UNKNOWN INDICATION
     Dosage: UNK
     Dates: start: 20090303, end: 20090818
  9. PYRIDOXAL 5-PHOSPHATE [Concomitant]
     Indication: DRUG USE FOR UNKNOWN INDICATION
     Dosage: UNK
     Dates: start: 20090512, end: 20090818

REACTIONS (2)
  - DEHYDRATION [None]
  - FEBRILE NEUTROPENIA [None]
